FAERS Safety Report 6339584-5 (Version None)
Quarter: 2009Q3

REPORT INFORMATION
  Report Type: 
  Country: None (occurrence: None)
  Receive Date: 20090903
  Receipt Date: 20080826
  Transmission Date: 20100115
  Serious: No
  Sender: FDA-Public Use
  Company Number: US-ALLERGAN-0810692US

PATIENT

DRUGS (1)
  1. ELIMITE [Suspect]
     Indication: INFESTATION
     Dosage: REPEATEDLY
     Route: 061

REACTIONS (1)
  - ALOPECIA [None]
